FAERS Safety Report 9445168 (Version 1)
Quarter: 2013Q3

REPORT INFORMATION
  Report Type: Spontaneous
  Country: DE (occurrence: None)
  Receive Date: 20130802
  Receipt Date: 20130802
  Transmission Date: 20140515
  Serious: Yes (Other)
  Sender: FDA-Public Use
  Company Number: USA/GER/13/0033844

PATIENT
  Sex: Female

DRUGS (12)
  1. METOPROLOL [Suspect]
  2. ALLOPURINOL [Suspect]
     Indication: HAEMOLYTIC URAEMIC SYNDROME
     Dosage: 100MG 1 IN 1 D
  3. FUROSEMIDE (FUROSEMIDE) [Suspect]
     Indication: PRODUCT USED FOR UNKNOWN INDICATION
  4. ALPHA-METHYLDOPA [Suspect]
     Indication: PRODUCT USED FOR UNKNOWN INDICATION
  5. MOXONIDINE [Suspect]
     Indication: PRODUCT USED FOR UNKNOWN INDICATION
  6. CLONIDINE [Suspect]
     Indication: PRODUCT USED FOR UNKNOWN INDICATION
  7. DARBEPOETIN ALFA [Suspect]
     Indication: PRODUCT USED FOR UNKNOWN INDICATION
  8. DANAPAROID [Suspect]
     Indication: PRODUCT USED FOR UNKNOWN INDICATION
  9. ENOXAPARIN [Suspect]
     Indication: PRODUCT USED FOR UNKNOWN INDICATION
  10. CORTICOSTEROID [Suspect]
     Indication: PRODUCT USED FOR UNKNOWN INDICATION
  11. COLECALCIFEROL [Suspect]
     Indication: PRODUCT USED FOR UNKNOWN INDICATION
  12. ALFACALCIDOL [Suspect]
     Indication: PRODUCT USED FOR UNKNOWN INDICATION

REACTIONS (3)
  - HELLP syndrome [None]
  - Exposure during pregnancy [None]
  - Premature delivery [None]
